FAERS Safety Report 7082805-4 (Version None)
Quarter: 2010Q4

REPORT INFORMATION
  Report Type: 
  Country: None (occurrence: None)
  Receive Date: 20101001
  Receipt Date: 20100720
  Transmission Date: 20110411
  Serious: No
  Sender: FDA-Public Use
  Company Number: 1000015237

PATIENT
  Age: 53 Year
  Sex: Male

DRUGS (6)
  1. BYSTOLIC [Suspect]
     Indication: HYPERTENSION
     Dosage: 5 MG (5 MG, 1 IN 1 D), ORAL (10 MG, 1 IN 1 D), ORAL
     Route: 048
     Dates: start: 20090101, end: 20100601
  2. BYSTOLIC [Suspect]
     Indication: HYPERTENSION
     Dosage: 5 MG (5 MG, 1 IN 1 D), ORAL (10 MG, 1 IN 1 D), ORAL
     Route: 048
     Dates: start: 20100601
  3. CRESTOR [Concomitant]
  4. AVALIDE [Concomitant]
  5. LASIX [Concomitant]
  6. VIAGRA [Concomitant]

REACTIONS (1)
  - CHEST PAIN [None]
